FAERS Safety Report 20013742 (Version 1)
Quarter: 2021Q4

REPORT INFORMATION
  Report Type: Spontaneous
  Country: JP (occurrence: JP)
  Receive Date: 20211029
  Receipt Date: 20211029
  Transmission Date: 20220303
  Serious: Yes (Hospitalization)
  Sender: FDA-Public Use
  Company Number: JP-BAYER-2021A237279

PATIENT
  Sex: Female

DRUGS (2)
  1. MIRENA [Suspect]
     Active Substance: LEVONORGESTREL
     Indication: Dysmenorrhoea
     Dosage: 20?G/DAY
     Route: 015
  2. DIENOGEST [Concomitant]
     Active Substance: DIENOGEST
     Indication: Dysmenorrhoea

REACTIONS (2)
  - Hospitalisation [None]
  - Intermenstrual bleeding [None]
